FAERS Safety Report 5598104-3 (Version None)
Quarter: 2008Q1

REPORT INFORMATION
  Report Type: 
  Country: None (occurrence: None)
  Receive Date: 20080122
  Receipt Date: 20080111
  Transmission Date: 20080703
  Serious: Yes (Hospitalization)
  Sender: FDA-Public Use
  Company Number: PHHO2008US00885

PATIENT
  Age: 53 Year
  Sex: Female
  Weight: 93.1 kg

DRUGS (4)
  1. NILOTINIB VS IMATINIB [Suspect]
     Indication: GASTROINTESTINAL STROMAL TUMOUR
     Dosage: 400 MG, BID
     Route: 048
     Dates: start: 20070726
  2. IMODIUM [Concomitant]
     Indication: DIARRHOEA
  3. LASIX [Concomitant]
  4. LOVENOX [Concomitant]
     Indication: PULMONARY EMBOLISM

REACTIONS (4)
  - DEHYDRATION [None]
  - DIARRHOEA [None]
  - HYPOTENSION [None]
  - SYNCOPE [None]
